FAERS Safety Report 19777282 (Version 1)
Quarter: 2021Q3

REPORT INFORMATION
  Report Type: Spontaneous
  Country: JP (occurrence: JP)
  Receive Date: 20210902
  Receipt Date: 20210902
  Transmission Date: 20211014
  Serious: Yes (Other)
  Sender: FDA-Public Use
  Company Number: JP-SUN PHARMACEUTICAL INDUSTRIES LTD-2021RR-309633

PATIENT
  Age: 51 Year
  Sex: Male

DRUGS (8)
  1. PREDNISOLONE. [Suspect]
     Active Substance: PREDNISOLONE
     Indication: IMMUNE SYSTEM DISORDER
     Dosage: 40 MILLIGRAM, DAILY
     Route: 065
  2. PACLITAXEL. [Suspect]
     Active Substance: PACLITAXEL
     Indication: LUNG ADENOCARCINOMA STAGE IV
     Dosage: UNK
     Route: 065
     Dates: start: 201704
  3. NIVOLUMAB [Concomitant]
     Active Substance: NIVOLUMAB
     Indication: LUNG ADENOCARCINOMA STAGE IV
     Dosage: 3.2 MILLIGRAM/KILOGRAM, 1 DOSE/3 WEEKS
     Route: 065
     Dates: start: 201808
  4. HYDROCORTISONE. [Concomitant]
     Active Substance: HYDROCORTISONE
     Indication: ADRENAL INSUFFICIENCY
     Dosage: 15 MILLIGRAM, DAILY
     Route: 065
  5. CARBOPLATIN. [Suspect]
     Active Substance: CARBOPLATIN
     Indication: LUNG ADENOCARCINOMA STAGE IV
     Dosage: UNK
     Route: 065
     Dates: start: 201704
  6. PACLITAXEL. [Suspect]
     Active Substance: PACLITAXEL
     Dosage: MAINTENANCE
     Route: 065
     Dates: start: 201707, end: 201710
  7. PREDNISOLONE. [Suspect]
     Active Substance: PREDNISOLONE
     Dosage: TAPERING SCHEDULE 5 MG/2 WEEKS
     Route: 065
  8. THYROID HORMONE [Concomitant]
     Indication: HYPOTHYROIDISM
     Dosage: 25 MICROGRAM, DAILY
     Route: 065

REACTIONS (6)
  - Drug ineffective [Unknown]
  - Liver injury [Recovering/Resolving]
  - Malignant neoplasm progression [Unknown]
  - Adrenal insufficiency [Unknown]
  - Thyroiditis [Unknown]
  - Hypothyroidism [Unknown]
